FAERS Safety Report 4898590-8 (Version None)
Quarter: 2006Q1

REPORT INFORMATION
  Report Type: 
  Country: None (occurrence: None)
  Receive Date: 20060127
  Receipt Date: 20060116
  Transmission Date: 20060701
  Serious: Yes (Other)
  Sender: FDA-Public Use
  Company Number: BMRN-2006-002

PATIENT
  Age: 23 Year
  Sex: Female

DRUGS (2)
  1. ORAPRED (PREDNISOLONE SODIUM PHOSPHATE) SODIUM (EXCEPT SYRUP), 20.2 MG [Suspect]
     Dosage: ORAL
     Route: 048
  2. PREDNISOLONE [Suspect]
     Indication: DERMATITIS ATOPIC
     Dosage: 40 MG, ORAL
     Route: 048

REACTIONS (8)
  - ANAPHYLACTIC REACTION [None]
  - CHEST DISCOMFORT [None]
  - CIRCULATORY COLLAPSE [None]
  - DIZZINESS [None]
  - NAUSEA [None]
  - PARAESTHESIA [None]
  - SIMILAR REACTION ON PREVIOUS EXPOSURE TO DRUG [None]
  - TYPE I HYPERSENSITIVITY [None]
